FAERS Safety Report 5482003-1 (Version None)
Quarter: 2007Q4

REPORT INFORMATION
  Report Type: 
  Country: None (occurrence: None)
  Receive Date: 20071004
  Receipt Date: 20070928
  Transmission Date: 20080405
  Serious: Yes (Other)
  Sender: FDA-Public Use
  Company Number: 2007332019

PATIENT
  Age: 49 Year
  Sex: Female
  Weight: 90.7194 kg

DRUGS (2)
  1. LISTERINE AGENT COOL BLUE BUBBLE BLAST (NO ACTIVE INGREDIENT) [Suspect]
     Indication: DENTAL PLAQUE
     Dosage: LABELED AMOUNT 3 TIMES PER WEEK, ORAL
     Route: 048
     Dates: start: 20070501, end: 20070514
  2. DIAZIDE (GLICLAZIDE) [Concomitant]

REACTIONS (1)
  - ORAL MUCOSAL BLISTERING [None]
